FAERS Safety Report 18590564 (Version 3)
Quarter: 2022Q2

REPORT INFORMATION
  Report Type: Spontaneous
  Country: IT (occurrence: IT)
  Receive Date: 20201208
  Receipt Date: 20220615
  Transmission Date: 20220721
  Serious: Yes (Death, Life-Threatening, Other)
  Sender: FDA-Public Use
  Company Number: IT-AMGEN-ITASP2020197056

PATIENT

DRUGS (2)
  1. PANITUMUMAB [Suspect]
     Active Substance: PANITUMUMAB
     Indication: Colorectal cancer metastatic
     Dosage: UNK
     Route: 065
     Dates: start: 202006
  2. GATIPOTUZUMAB [Concomitant]
     Indication: Colorectal cancer metastatic
     Dosage: UNK
     Route: 065

REACTIONS (19)
  - Adverse event [Unknown]
  - Adverse drug reaction [Unknown]
  - Colorectal cancer [Unknown]
  - Metabolic disorder [Unknown]
  - Infusion related reaction [Unknown]
  - Skin toxicity [Unknown]
  - Death [Fatal]
  - Alanine aminotransferase increased [Unknown]
  - Aspartate aminotransferase increased [Unknown]
  - Therapy partial responder [Unknown]
  - Hypomagnesaemia [Unknown]
  - Rash [Unknown]
  - Nausea [Unknown]
  - Pyrexia [Unknown]
  - Dyspnoea [Unknown]
  - Asthenia [Unknown]
  - Dermatitis acneiform [Unknown]
  - Decreased appetite [Unknown]
  - Diarrhoea [Unknown]

NARRATIVE: CASE EVENT DATE: 20200101
